FAERS Safety Report 8382613-8 (Version None)
Quarter: 2012Q2

REPORT INFORMATION
  Report Type: 
  Country: None (occurrence: None)
  Receive Date: 20120524
  Receipt Date: 20120517
  Transmission Date: 20120825
  Serious: Yes (Hospitalization, Disabling, Other)
  Sender: FDA-Public Use
  Company Number: GB-SP-2012-04397

PATIENT
  Sex: Female

DRUGS (3)
  1. IMMUCYST [Suspect]
     Route: 065
     Dates: start: 20120330, end: 20120330
  2. IMMUCYST [Suspect]
     Route: 065
     Dates: start: 20120316, end: 20120316
  3. IMMUCYST [Suspect]
     Indication: PRODUCT USED FOR UNKNOWN INDICATION
     Route: 065
     Dates: start: 20120309, end: 20120323

REACTIONS (5)
  - DEEP VEIN THROMBOSIS [None]
  - CYSTITIS [None]
  - ARTHRALGIA [None]
  - OEDEMA PERIPHERAL [None]
  - FIBROMYALGIA [None]
